FAERS Safety Report 5890899-4 (Version None)
Quarter: 2008Q3

REPORT INFORMATION
  Report Type: 
  Country: None (occurrence: None)
  Receive Date: 20080918
  Receipt Date: 20080918
  Transmission Date: 20090109
  Serious: Yes (Life-Threatening, Other)
  Sender: FDA-Public Use
  Company Number: None

PATIENT
  Age: 38 Year
  Sex: Female
  Weight: 67.586 kg

DRUGS (1)
  1. METHADONE HCL [Suspect]
     Indication: PAIN
     Dosage: TWO TABLETS TWICE A DAY PO
     Route: 048
     Dates: start: 20080617, end: 20080701

REACTIONS (10)
  - AMNESIA [None]
  - DYSPNOEA [None]
  - FEELING ABNORMAL [None]
  - GAIT DISTURBANCE [None]
  - HEART RATE INCREASED [None]
  - JOINT SWELLING [None]
  - OEDEMA PERIPHERAL [None]
  - SEDATION [None]
  - SLEEP APNOEA SYNDROME [None]
  - SOMNOLENCE [None]
